FAERS Safety Report 14190081 (Version 2)
Quarter: 2017Q4

REPORT INFORMATION
  Report Type: Spontaneous
  Country: US (occurrence: US)
  Receive Date: 20171115
  Receipt Date: 20171120
  Transmission Date: 20180321
  Serious: No
  Sender: FDA-Public Use
  Company Number: US-PFIZER INC-2017490931

PATIENT
  Age: 60 Year
  Sex: Female
  Weight: 79 kg

DRUGS (3)
  1. IRON [Concomitant]
     Active Substance: IRON
     Indication: BLOOD DISORDER
     Dosage: 325MG ONE PILL TWICE A DAY
  2. LYRICA [Suspect]
     Active Substance: PREGABALIN
     Indication: NEUROPATHY PERIPHERAL
     Dosage: ONE CAPSULE ONCE A DAY / THE FIRST WEEK WAS TAKING ONE A DAY
     Dates: start: 201710
  3. LYRICA [Suspect]
     Active Substance: PREGABALIN
     Dosage: SECOND WEEK WAS TWO CAPSULES TWICE A DAY
     Dates: start: 2017

REACTIONS (1)
  - Drug ineffective [Unknown]

NARRATIVE: CASE EVENT DATE: 201710
